FAERS Safety Report 8697983 (Version 2)
Quarter: 2012Q4

REPORT INFORMATION
  Report Type: 
  Country: US (occurrence: US)
  Receive Date: 20120801
  Receipt Date: 20121221
  Transmission Date: 20130627
  Serious: Yes (Other)
  Sender: FDA-Public Use
  Company Number: PHEH2012US014946

PATIENT
  Age: 35 None
  Sex: Female

DRUGS (7)
  1. GILENYA [Suspect]
     Indication: MULTIPLE SCLEROSIS
     Dosage: 0.5 mg, QD
     Route: 048
     Dates: start: 20110830, end: 20120727
  2. WELLBUTRIN [Concomitant]
     Indication: DEPRESSION
     Dosage: 300 mg, QD
     Route: 048
  3. FAMCICLOVIR [Concomitant]
     Dosage: 250 mg, BID
     Route: 048
  4. NASONEX [Concomitant]
     Dosage: 2 sprays daily
  5. ALDACTONE [Concomitant]
     Dosage: 25 mg, QD
     Route: 048
  6. ADDERALL [Concomitant]
     Indication: FATIGUE
     Dosage: 30 mg, BID
     Route: 048
  7. ZONISAMIDE [Concomitant]
     Dosage: UNK UKN, UNK

REACTIONS (21)
  - Electrocardiogram QT prolonged [Recovered/Resolved]
  - Syncope [Recovered/Resolved]
  - Loss of consciousness [Recovering/Resolving]
  - Weight decreased [Unknown]
  - Electrocardiogram abnormal [Recovering/Resolving]
  - Sinus tachycardia [Recovering/Resolving]
  - Blood pressure orthostatic decreased [Recovering/Resolving]
  - Dizziness [Recovering/Resolving]
  - Granulocyte count increased [Recovering/Resolving]
  - Blood potassium decreased [Recovering/Resolving]
  - Blood chloride increased [Recovering/Resolving]
  - Feeling abnormal [Recovering/Resolving]
  - Head injury [Recovering/Resolving]
  - Hypoaesthesia [Recovering/Resolving]
  - Blood creatinine increased [Recovering/Resolving]
  - Blood glucose increased [Recovering/Resolving]
  - Tinnitus [Recovering/Resolving]
  - Lymphocyte count decreased [Recovering/Resolving]
  - Sinus bradycardia [Recovering/Resolving]
  - Dyspnoea [Recovering/Resolving]
  - Migraine [Recovering/Resolving]
